FAERS Safety Report 21951778 (Version 1)
Quarter: 2023Q1

REPORT INFORMATION
  Report Type: Spontaneous
  Country: CN (occurrence: CN)
  Receive Date: 20230203
  Receipt Date: 20230203
  Transmission Date: 20230417
  Serious: Yes (Other)
  Sender: FDA-Public Use
  Company Number: CN-PFIZER INC-PV202300020253

PATIENT
  Age: 74 Year
  Sex: Female
  Weight: 60 kg

DRUGS (3)
  1. NIRMATRELVIR\RITONAVIR [Suspect]
     Active Substance: NIRMATRELVIR\RITONAVIR
     Indication: COVID-19 treatment
     Dosage: 1 DF, 3X/DAY, 2ND CYCLE
     Route: 048
     Dates: start: 20221229, end: 20230107
  2. PROPOFOL [Suspect]
     Active Substance: PROPOFOL
     Indication: Coma
     Dosage: 0.6 G, 2X/DAY
     Dates: start: 20221225, end: 20230107
  3. PROPOFOL [Suspect]
     Active Substance: PROPOFOL
     Indication: Chronic obstructive pulmonary disease

REACTIONS (4)
  - Drug-induced liver injury [Recovering/Resolving]
  - Transaminases increased [Recovering/Resolving]
  - Off label use [Unknown]
  - Product use issue [Unknown]

NARRATIVE: CASE EVENT DATE: 20230103
